FAERS Safety Report 6881356-7 (Version None)
Quarter: 2010Q3

REPORT INFORMATION
  Report Type: 
  Country: None (occurrence: None)
  Receive Date: 20100728
  Receipt Date: 20100728
  Transmission Date: 20110219
  Serious: Yes (Hospitalization)
  Sender: FDA-Public Use
  Company Number: None

PATIENT
  Age: 81 Year
  Sex: Male

DRUGS (4)
  1. WARFARIN SODIUM [Suspect]
     Indication: DEEP VEIN THROMBOSIS
     Dosage: 5 MG EVERY DAY PO
     Route: 048
     Dates: start: 20070601, end: 20100309
  2. WARFARIN SODIUM [Suspect]
     Indication: PULMONARY EMBOLISM
     Dosage: 5 MG EVERY DAY PO
     Route: 048
     Dates: start: 20070601, end: 20100309
  3. ASPIRIN [Suspect]
     Indication: DEEP VEIN THROMBOSIS
     Dosage: 325 MG EVERY DAY PO
     Route: 048
     Dates: start: 20090527, end: 20100309
  4. ASPIRIN [Suspect]
     Indication: PULMONARY EMBOLISM
     Dosage: 325 MG EVERY DAY PO
     Route: 048
     Dates: start: 20090527, end: 20100309

REACTIONS (2)
  - EPISTAXIS [None]
  - GASTROINTESTINAL HAEMORRHAGE [None]
